FAERS Safety Report 20305663 (Version 6)
Quarter: 2022Q3

REPORT INFORMATION
  Report Type: Report from Study
  Country: CN (occurrence: CN)
  Receive Date: 20220106
  Receipt Date: 20220705
  Transmission Date: 20221027
  Serious: Yes (Hospitalization)
  Sender: FDA-Public Use
  Company Number: CN-ADC THERAPEUTICS-ADC-2021-000188

PATIENT
  Age: 67 Year
  Sex: Male

DRUGS (8)
  1. LONCASTUXIMAB TESIRINE [Suspect]
     Active Substance: LONCASTUXIMAB TESIRINE
     Indication: Diffuse large B-cell lymphoma
     Dosage: 150 MICROGRAM/KILOGRAM, Q3WK
     Route: 042
     Dates: start: 20211210, end: 20220107
  2. ASPIRIN [Concomitant]
     Active Substance: ASPIRIN
     Indication: Platelet aggregation inhibition
     Dosage: 100 MG, QD
     Route: 048
     Dates: start: 20210101, end: 20211220
  3. INSULIN ASPART;INSULIN ASPART PROTAMINE (CRYSTALLINE) [Concomitant]
     Indication: Hypoglycaemia
     Dosage: 15 IU, TID
     Route: 058
     Dates: start: 20211115
  4. OXYCODONE HYDROCHLORIDE [Concomitant]
     Active Substance: OXYCODONE HYDROCHLORIDE
     Indication: Analgesic therapy
     Dosage: 20 MICROGRAM, Q12H
     Route: 048
     Dates: start: 20211119
  5. RAMIPRIL [Concomitant]
     Active Substance: RAMIPRIL
     Indication: Blood pressure decreased
     Dosage: 5 MG, BID
     Route: 048
     Dates: start: 20211206
  6. RABEPRAZOLE SODIUM [Concomitant]
     Active Substance: RABEPRAZOLE SODIUM
     Indication: Gastrointestinal disorder prophylaxis
     Dosage: 20 MG, QD
     Route: 048
     Dates: start: 20211208
  7. HYDROTALCITE [Concomitant]
     Active Substance: HYDROTALCITE
     Indication: Gastrointestinal disorder prophylaxis
     Dosage: 0.5 G, TID
     Route: 048
     Dates: start: 20211208
  8. OMEPRAZOLE MAGNESIUM [Concomitant]
     Active Substance: OMEPRAZOLE MAGNESIUM
     Indication: Gastrointestinal disorder prophylaxis
     Dosage: 20 MG, QD
     Route: 048
     Dates: start: 20211210

REACTIONS (3)
  - Platelet count decreased [Recovering/Resolving]
  - Platelet count decreased [Recovering/Resolving]
  - Pneumonia bacterial [Recovered/Resolved]

NARRATIVE: CASE EVENT DATE: 20211217
